FAERS Safety Report 7876975-5 (Version None)
Quarter: 2011Q4

REPORT INFORMATION
  Report Type: 
  Country: None (occurrence: None)
  Receive Date: 20111031
  Receipt Date: 20110621
  Transmission Date: 20120403
  Serious: Yes (Other)
  Sender: FDA-Public Use
  Company Number: US-BAYER-2011-040638

PATIENT
  Age: 68 Year
  Sex: Female

DRUGS (3)
  1. SORAFENIB (RAF KINASE INHIBITOR) [Suspect]
     Indication: HEPATIC NEOPLASM MALIGNANT
     Dosage: 200 MG, BID
     Route: 048
     Dates: start: 20110426
  2. SORAFENIB (RAF KINASE INHIBITOR) [Suspect]
     Dosage: 400 MG, BID
     Route: 048
     Dates: end: 20110619
  3. SORAFENIB (RAF KINASE INHIBITOR) [Suspect]
     Dosage: 400 MG AM/200 MG PM
     Route: 048
     Dates: start: 20110620

REACTIONS (9)
  - CONTUSION [None]
  - FATIGUE [None]
  - SKIN EXFOLIATION [None]
  - MALAISE [None]
  - SWELLING [None]
  - ABDOMINAL DISTENSION [None]
  - URINARY RETENTION [None]
  - DRY SKIN [None]
  - VAGINAL HAEMORRHAGE [None]
